FAERS Safety Report 21248152 (Version 4)
Quarter: 2023Q4

REPORT INFORMATION
  Report Type: Spontaneous
  Country: ES (occurrence: ES)
  Receive Date: 20220824
  Receipt Date: 20231219
  Transmission Date: 20240110
  Serious: Yes (Death, Hospitalization)
  Sender: FDA-Public Use
  Company Number: None

PATIENT
  Age: 92 Year
  Sex: Female

DRUGS (10)
  1. SIMVASTATIN [Suspect]
     Active Substance: SIMVASTATIN
     Indication: Suicide attempt
     Dosage: 140 MG,TOTAL
     Route: 048
     Dates: start: 20170611, end: 20170611
  2. RAMIPRIL [Suspect]
     Active Substance: RAMIPRIL
     Indication: Suicide attempt
     Dosage: 17.5 MG, TOTAL
     Route: 048
     Dates: start: 20170611, end: 20170611
  3. OLANZAPINE [Suspect]
     Active Substance: OLANZAPINE
     Indication: Suicide attempt
     Dosage: 18 MG, TOTAL
     Route: 048
     Dates: start: 20170611, end: 20170611
  4. PREGABALIN [Suspect]
     Active Substance: PREGABALIN
     Indication: Suicide attempt
     Dosage: 1050 MG,TOTAL
     Route: 048
     Dates: start: 20170611, end: 20170611
  5. ACETAMINOPHEN [Suspect]
     Active Substance: ACETAMINOPHEN
     Indication: Suicide attempt
     Dosage: 21 G,TOTAL
     Route: 048
     Dates: start: 20170611, end: 20170611
  6. OMEPRAZOLE [Suspect]
     Active Substance: OMEPRAZOLE
     Indication: Suicide attempt
     Dosage: 140 MG,TOTAL
     Route: 048
     Dates: start: 20170611, end: 20170611
  7. CITALOPRAM [Suspect]
     Active Substance: CITALOPRAM HYDROBROMIDE
     Indication: Suicide attempt
     Dosage: 140 MG,TOTAL
     Route: 048
     Dates: start: 20170611, end: 20170611
  8. ZOLPIDEM [Suspect]
     Active Substance: ZOLPIDEM TARTRATE
     Indication: Suicide attempt
     Dosage: 70 MG,TOTAL
     Route: 048
     Dates: start: 20170611, end: 20170611
  9. METFORMIN [Suspect]
     Active Substance: METFORMIN HYDROCHLORIDE
     Indication: Suicide attempt
     Dosage: 18 GRAM
     Route: 048
     Dates: start: 20170611, end: 20170611
  10. ALPRAZOLAM [Suspect]
     Active Substance: ALPRAZOLAM
     Indication: Suicide attempt
     Dosage: 7 MG,TOTAL
     Route: 048
     Dates: start: 20170611, end: 20170611

REACTIONS (1)
  - Intentional overdose [Fatal]

NARRATIVE: CASE EVENT DATE: 20170611
